FAERS Safety Report 13932572 (Version 2)
Quarter: 2017Q4

REPORT INFORMATION
  Report Type: Spontaneous
  Country: US (occurrence: US)
  Receive Date: 20170904
  Receipt Date: 20171215
  Transmission Date: 20180320
  Serious: Yes (Death)
  Sender: FDA-Public Use
  Company Number: US-CHIESI USA INC-US-CHSI-17-00042

PATIENT

DRUGS (1)
  1. KENGREAL [Suspect]
     Active Substance: CANGRELOR
     Indication: ANTICOAGULANT THERAPY
     Route: 041

REACTIONS (3)
  - Drug ineffective for unapproved indication [Fatal]
  - Product quality issue [Fatal]
  - Vascular stent thrombosis [Fatal]
